FAERS Safety Report 4640225-3 (Version None)
Quarter: 2005Q2

REPORT INFORMATION
  Report Type: 
  Country: None (occurrence: None)
  Receive Date: 20050419
  Receipt Date: 20050411
  Transmission Date: 20051028
  Serious: Yes (Hospitalization, Other)
  Sender: FDA-Public Use
  Company Number: MEDI-0003160

PATIENT
  Age: 70 Year
  Sex: Male
  Weight: 79.8331 kg

DRUGS (2)
  1. ETHYOL [Suspect]
     Indication: RADIOTHERAPY
     Dosage: 500 MG, 5 IN 1 WK, SUBCUTANEOUS
     Route: 058
     Dates: start: 20050307, end: 20050401
  2. RADIATION THERAPY [Concomitant]

REACTIONS (5)
  - DEHYDRATION [None]
  - GASTROINTESTINAL TUBE INSERTION [None]
  - HYPOTENSION [None]
  - OEDEMA PERIPHERAL [None]
  - RASH GENERALISED [None]
